FAERS Safety Report 16589534 (Version 1)
Quarter: 2019Q3

REPORT INFORMATION
  Report Type: Spontaneous
  Country: FR (occurrence: FR)
  Receive Date: 20190718
  Receipt Date: 20190718
  Transmission Date: 20191004
  Serious: Yes (Other)
  Sender: FDA-Public Use
  Company Number: FR-ACCORD-138724

PATIENT
  Age: 80 Year
  Sex: Female
  Weight: 78 kg

DRUGS (3)
  1. FLUOROURACIL ACCORD [Suspect]
     Active Substance: FLUOROURACIL
     Indication: COLORECTAL CANCER METASTATIC
     Dosage: STRENGTH 50 MG/ML,SOLUTION FOR PERFUSION
     Route: 042
     Dates: start: 20180110, end: 20190515
  2. CALCIUM LEVOFOLINATE ZENTIVA [Suspect]
     Active Substance: LEVOLEUCOVORIN CALCIUM
     Indication: COLORECTAL CANCER METASTATIC
     Route: 042
     Dates: start: 20180110, end: 20190515
  3. AVASTIN [Suspect]
     Active Substance: BEVACIZUMAB
     Indication: COLORECTAL CANCER METASTATIC
     Dosage: STRENGTH 25 MG/ML
     Route: 042
     Dates: start: 20180110, end: 20190515

REACTIONS (2)
  - Pharyngeal oedema [Recovered/Resolved]
  - Oedema mouth [Recovered/Resolved]

NARRATIVE: CASE EVENT DATE: 20190515
